FAERS Safety Report 7338156-3 (Version None)
Quarter: 2011Q1

REPORT INFORMATION
  Report Type: 
  Country: None (occurrence: None)
  Receive Date: 20110308
  Receipt Date: 20110223
  Transmission Date: 20110831
  Serious: Yes (Hospitalization, Other)
  Sender: FDA-Public Use
  Company Number: FR-ELI_LILLY_AND_COMPANY-FR201103000157

PATIENT
  Sex: Female

DRUGS (7)
  1. CARDENSIEL [Concomitant]
     Indication: HYPERTENSION
     Dosage: 205 MG, DAILY (1/D)
     Route: 048
  2. APROVEL [Concomitant]
     Dosage: 300 MG, DAILY (1/D)
     Route: 048
  3. LEVOTHYROXINE SODIUM [Concomitant]
     Indication: HYPOTHYROIDISM
     Dosage: 125 UG, DAILY (1/D)
     Route: 048
  4. ZELITREX [Concomitant]
     Indication: HERPES ZOSTER
     Dosage: UNK, UNKNOWN
     Route: 048
  5. PREVISCAN [Concomitant]
     Indication: ATRIAL FIBRILLATION
     Dosage: 15 MG, DAILY (1/D)
     Route: 048
  6. MORPHINE [Concomitant]
     Dates: end: 20100610
  7. CYMBALTA [Suspect]
     Indication: NEURALGIA
     Dates: start: 20100611, end: 20100717

REACTIONS (8)
  - HYPONATRAEMIA [None]
  - CONFUSIONAL STATE [None]
  - ASTHENIA [None]
  - URINE SODIUM INCREASED [None]
  - URINARY RETENTION [None]
  - FALL [None]
  - OFF LABEL USE [None]
  - ESCHERICHIA URINARY TRACT INFECTION [None]
